FAERS Safety Report 14909175 (Version 3)
Quarter: 2018Q2

REPORT INFORMATION
  Report Type: Spontaneous
  Country: US (occurrence: US)
  Receive Date: 20180517
  Receipt Date: 20180607
  Transmission Date: 20180711
  Serious: No
  Sender: FDA-Public Use
  Company Number: US-PFIZER INC-2018198659

PATIENT
  Age: 58 Year
  Sex: Female

DRUGS (1)
  1. PREGABALIN. [Suspect]
     Active Substance: PREGABALIN
     Indication: NEUROFIBROMATOSIS
     Dosage: 150 MG, UNK

REACTIONS (1)
  - Drug ineffective for unapproved indication [Unknown]
